FAERS Safety Report 8486942-9 (Version None)
Quarter: 2012Q3

REPORT INFORMATION
  Report Type: 
  Country: None (occurrence: None)
  Receive Date: 20120704
  Receipt Date: 20120620
  Transmission Date: 20120928
  Serious: Yes (Other)
  Sender: FDA-Public Use
  Company Number: GB-BAUSCH-2012BL001966

PATIENT
  Age: 55 Year
  Sex: Male

DRUGS (14)
  1. DOXORUBICIN HCL [Suspect]
     Route: 042
     Dates: start: 20100927, end: 20101017
  2. ENOXAPARIN SODIUM [Concomitant]
     Route: 058
     Dates: start: 20111109
  3. DOXORUBICIN HCL [Suspect]
     Indication: MULTIPLE MYELOMA
     Route: 042
     Dates: start: 20101018, end: 20101109
  4. AMOXICILLIN [Concomitant]
     Route: 048
     Dates: start: 20101025
  5. DEXAMETHASONE SODIUM PHOSPHATE [Suspect]
     Route: 048
     Dates: start: 20100927, end: 20101017
  6. VELCADE [Suspect]
     Dosage: DOSE UNIT:UNKNOWN
     Route: 042
     Dates: start: 20100927
  7. DEXAMETHASONE SODIUM PHOSPHATE [Concomitant]
     Dates: start: 20091101, end: 20100101
  8. MELPHALAN HYDROCHLORIDE [Concomitant]
     Dates: start: 20100301, end: 20100301
  9. DEXAMETHASONE SODIUM PHOSPHATE [Suspect]
     Indication: MULTIPLE MYELOMA
     Route: 048
     Dates: start: 20101018, end: 20101109
  10. VELCADE [Suspect]
     Indication: MULTIPLE MYELOMA
     Dosage: DOSE UNIT:UNKNOWN
     Route: 042
     Dates: start: 20101018, end: 20101110
  11. CYCLOPHOSPHAMIDE [Concomitant]
     Indication: MULTIPLE MYELOMA
     Dates: start: 20091101, end: 20100101
  12. THALIDOMIDE [Concomitant]
     Indication: MULTIPLE MYELOMA
     Dates: start: 20091101, end: 20100101
  13. GABAPENTIN [Concomitant]
     Indication: ANALGESIC THERAPY
     Route: 048
     Dates: start: 20101024
  14. ACETAMINOPHEN [Concomitant]
     Indication: ANALGESIC THERAPY
     Route: 048
     Dates: start: 20101025

REACTIONS (3)
  - MULTIPLE MYELOMA [None]
  - DRUG INEFFECTIVE [None]
  - DIARRHOEA [None]
